FAERS Safety Report 7725847-5 (Version None)
Quarter: 2011Q3

REPORT INFORMATION
  Report Type: 
  Country: None (occurrence: None)
  Receive Date: 20110902
  Receipt Date: 20110825
  Transmission Date: 20111222
  Serious: Yes (Other)
  Sender: FDA-Public Use
  Company Number: JP-PFIZER INC-2011197229

PATIENT
  Age: 87 Year
  Sex: Male

DRUGS (3)
  1. TIMOPTOL [Concomitant]
     Dosage: UNK
     Route: 031
  2. XALATAN [Suspect]
     Dosage: UNK
     Route: 031
     Dates: start: 20050101
  3. AZOPT [Concomitant]
     Route: 031

REACTIONS (1)
  - INTRAOCULAR PRESSURE INCREASED [None]
